FAERS Safety Report 4639991-2 (Version None)
Quarter: 2005Q2

REPORT INFORMATION
  Report Type: 
  Country: None (occurrence: None)
  Receive Date: 20050420
  Receipt Date: 20050411
  Transmission Date: 20051028
  Serious: Yes (Other)
  Sender: FDA-Public Use
  Company Number: 200513351GDDC

PATIENT
  Sex: Male

DRUGS (4)
  1. RILUTEK [Suspect]
     Dates: start: 20050101
  2. QUININE SULFATE [Concomitant]
     Indication: MUSCLE SPASMS
  3. VITAMIN E [Concomitant]
     Dosage: DOSE UNIT: UNITS
  4. VITAMIN C [Concomitant]

REACTIONS (4)
  - ATRIAL FIBRILLATION [None]
  - CARDIAC MURMUR [None]
  - FLUSHING [None]
  - GASTROINTESTINAL DISORDER [None]
